FAERS Safety Report 16378606 (Version 1)
Quarter: 2019Q2

REPORT INFORMATION
  Report Type: Other
  Country: DE (occurrence: DE)
  Receive Date: 20190531
  Receipt Date: 20190531
  Transmission Date: 20190711
  Serious: Yes (Death, Life-Threatening)
  Sender: FDA-Public Use
  Company Number: DE-NOSTRUM LABORATORIES, INC.-2067660

PATIENT
  Age: 52 Year
  Sex: Male
  Weight: 58 kg

DRUGS (2)
  1. VENLAFAXINE HYDROCHLORIDE. [Suspect]
     Active Substance: VENLAFAXINE HYDROCHLORIDE
     Indication: DEPRESSION
     Route: 048
  2. N-ETHYLDESCHLOROKETAMINE (A ^DESIGNER^ STREET CHEMICAL PRODUCT, NOT A [Concomitant]

REACTIONS (1)
  - Accidental overdose [Fatal]
